FAERS Safety Report 5506410-3 (Version None)
Quarter: 2007Q4

REPORT INFORMATION
  Report Type: 
  Country: None (occurrence: None)
  Receive Date: 20071101
  Receipt Date: 20071101
  Transmission Date: 20080405
  Serious: Yes (Life-Threatening, Hospitalization)
  Sender: FDA-Public Use
  Company Number: None

PATIENT
  Sex: Female
  Weight: 98.8842 kg

DRUGS (1)
  1. PROZAC [Suspect]
     Indication: DEPRESSION
     Dosage: 20 MG ONCE DAILY PO
     Route: 048
     Dates: start: 20071015, end: 20071017

REACTIONS (4)
  - AMNESIA [None]
  - ASPIRATION [None]
  - PNEUMONIA [None]
  - SUICIDE ATTEMPT [None]
